FAERS Safety Report 4625242-1 (Version None)
Quarter: 2005Q2

REPORT INFORMATION
  Report Type: 
  Country: None (occurrence: None)
  Receive Date: 20050401
  Receipt Date: 20050323
  Transmission Date: 20051028
  Serious: Yes (Death)
  Sender: FDA-Public Use
  Company Number: CH-ROCHE-399481

PATIENT
  Age: 47 Year
  Sex: Male
  Weight: 62.5 kg

DRUGS (10)
  1. PEG-INTERFERON ALFA 2A (RO 25-8310) [Suspect]
     Route: 058
     Dates: start: 20040729, end: 20040825
  2. PEG-INTERFERON ALFA 2A (RO 25-8310) [Suspect]
     Route: 058
     Dates: start: 20040826, end: 20040922
  3. PEG-INTERFERON ALFA 2A (RO 25-8310) [Suspect]
     Route: 058
     Dates: start: 20040923, end: 20050113
  4. PEG-INTERFERON ALFA 2A (RO 25-8310) [Suspect]
     Dosage: TREATMENT RESTARTED AT MAXIMUM TOLERABLE DOSE.
     Route: 058
     Dates: start: 20050118
  5. RIBAVIRIN [Suspect]
     Route: 048
     Dates: start: 20040729, end: 20050219
  6. ABACAVIR [Concomitant]
     Dates: start: 20010820
  7. EFAVIRENZ [Concomitant]
     Dates: start: 20010820
  8. LOPINAVIR/RITONAVIR [Concomitant]
     Dosage: TOTAL DAILY DOSES WERE 1066 MG (LOPINAVIR) AND 266 MG (RITONAVIR).
     Dates: start: 20010820
  9. METHADONE HCL [Concomitant]
     Dates: start: 19950615
  10. OMEPRAZOLE [Concomitant]
     Dates: start: 20050227

REACTIONS (8)
  - ARRHYTHMIA [None]
  - ASTHENIA [None]
  - CARDIOVASCULAR DISORDER [None]
  - HAEMORRHAGE [None]
  - LOSS OF CONSCIOUSNESS [None]
  - MYOCARDIAL INFARCTION [None]
  - SUDDEN DEATH [None]
  - THROMBOCYTOPENIA [None]
